FAERS Safety Report 22699833 (Version 2)
Quarter: 2023Q4

REPORT INFORMATION
  Report Type: Report from Study
  Country: CA (occurrence: CA)
  Receive Date: 20230713
  Receipt Date: 20231009
  Transmission Date: 20240110
  Serious: Yes (Other)
  Sender: FDA-Public Use
  Company Number: CA-JNJFOC-20230724111

PATIENT
  Age: 30 Year
  Sex: Male
  Weight: 84 kg

DRUGS (1)
  1. REMICADE [Suspect]
     Active Substance: INFLIXIMAB
     Indication: Crohn^s disease
     Dosage: ON 11-JUL-2023, PATIENT RECEIVED 26TH INFLIXIMAB INFUSION AT 500 MG AND PARTIAL HARVEY-BRADSHAW COMP
     Route: 041
     Dates: start: 20201028, end: 20230919

REACTIONS (4)
  - Haematochezia [Recovering/Resolving]
  - General physical health deterioration [Not Recovered/Not Resolved]
  - Drug ineffective [Unknown]
  - Off label use [Unknown]

NARRATIVE: CASE EVENT DATE: 20201028
